FAERS Safety Report 5709103-2 (Version None)
Quarter: 2008Q2

REPORT INFORMATION
  Report Type: 
  Country: None (occurrence: None)
  Receive Date: 20080416
  Receipt Date: 20080416
  Transmission Date: 20081010
  Serious: Yes (Life-Threatening, Hospitalization, Disabling, Other)
  Sender: FDA-Public Use
  Company Number: None

PATIENT
  Age: 11 Year
  Sex: Female
  Weight: 49.4421 kg

DRUGS (2)
  1. TEMODAR [Suspect]
     Indication: GLIOMA
  2. LOMUSTINE 140 MGS BRISTOL-MYERS SQUIBB [Suspect]
     Indication: GLIOMA

REACTIONS (7)
  - ABDOMINAL PAIN UPPER [None]
  - COMPUTERISED TOMOGRAM ABNORMAL [None]
  - FLUID INTAKE REDUCED [None]
  - HEPATIC MASS [None]
  - LIPOMA [None]
  - ORAL INTAKE REDUCED [None]
  - VOMITING [None]
